FAERS Safety Report 6024571-7 (Version None)
Quarter: 2008Q4

REPORT INFORMATION
  Report Type: 
  Country: None (occurrence: None)
  Receive Date: 20081231
  Receipt Date: 20081030
  Transmission Date: 20090506
  Serious: No
  Sender: FDA-Public Use
  Company Number: US-BRISTOL-MYERS SQUIBB COMPANY-14390231

PATIENT
  Age: 50 Year
  Sex: Female
  Weight: 113 kg

DRUGS (9)
  1. ORENCIA [Suspect]
     Indication: RHEUMATOID ARTHRITIS
     Route: 042
     Dates: start: 20080610
  2. ACETAMINOPHEN [Concomitant]
  3. CLARITIN [Concomitant]
     Indication: PREMEDICATION
     Dates: end: 20080904
  4. PREDNISONE [Concomitant]
  5. AVALIDE [Concomitant]
  6. POTASSIUM CHLORIDE [Concomitant]
  7. ZETIA [Concomitant]
  8. LIPITOR [Concomitant]
  9. ASPIRIN [Concomitant]

REACTIONS (2)
  - CHEST DISCOMFORT [None]
  - WHEEZING [None]
